FAERS Safety Report 8838840 (Version 1)
Quarter: 2012Q4

REPORT INFORMATION
  Report Type: Spontaneous
  Country: US (occurrence: None)
  Receive Date: 20121011
  Receipt Date: 20121011
  Transmission Date: 20130627
  Serious: Yes (Death, Life-Threatening, Hospitalization, Disabling, Other)
  Sender: FDA-Public Use
  Company Number: None

PATIENT
  Age: 13 Year
  Sex: Female
  Weight: 23.59 kg

DRUGS (1)
  1. BOSENTAN [Suspect]
     Indication: PULMONARY HYPERTENSION
     Dosage: 62.5 2 po
     Route: 048
     Dates: start: 20100901, end: 20120912

REACTIONS (9)
  - Bone pain [None]
  - Decreased appetite [None]
  - Fatigue [None]
  - Oedema [None]
  - Hypotension [None]
  - Arthralgia [None]
  - Rickets [None]
  - Oxygen saturation decreased [None]
  - Drug hypersensitivity [None]
